FAERS Safety Report 6383765-1 (Version None)
Quarter: 2009Q4

REPORT INFORMATION
  Report Type: 
  Country: None (occurrence: None)
  Receive Date: 20091001
  Receipt Date: 20090922
  Transmission Date: 20100525
  Serious: Yes (Other)
  Sender: FDA-Public Use
  Company Number: BR-JNJFOC-20090404214

PATIENT
  Age: 22 Year
  Sex: Female
  Weight: 78 kg

DRUGS (5)
  1. ORTHO EVRA [Suspect]
     Indication: CONTRACEPTION
     Dosage: ETHINYL ESTRADIOL 0.6 MG/ NORELGESTROMIN 6 MG
     Route: 062
  2. CARBAMAZEPINE [Interacting]
     Route: 065
  3. CARBAMAZEPINE [Interacting]
     Indication: CEREBRAL DISORDER
     Route: 065
  4. AMATO(TOPIRAMATE) [Interacting]
     Indication: EPILEPSY
     Route: 065
  5. RIVOTRIL [Concomitant]
     Indication: ANXIETY
     Route: 060

REACTIONS (8)
  - DRUG ADMINISTRATION ERROR [None]
  - DRUG DISPENSING ERROR [None]
  - DRUG INTERACTION [None]
  - EPILEPSY [None]
  - NAUSEA [None]
  - PANIC DISORDER [None]
  - THERAPEUTIC RESPONSE UNEXPECTED [None]
  - WEIGHT INCREASED [None]
